FAERS Safety Report 6573321-4 (Version None)
Quarter: 2010Q1

REPORT INFORMATION
  Report Type: 
  Country: None (occurrence: None)
  Receive Date: 20100208
  Receipt Date: 20100127
  Transmission Date: 20100710
  Serious: Yes (Hospitalization)
  Sender: FDA-Public Use
  Company Number: PL-PFIZER INC-2010011388

PATIENT
  Age: 20 Year
  Sex: Male

DRUGS (1)
  1. VFEND [Suspect]
     Indication: FUNGAL INFECTION
     Dosage: UNK
     Dates: start: 20091130, end: 20100113

REACTIONS (2)
  - DRUG INEFFECTIVE [None]
  - FUNGAL INFECTION [None]
